FAERS Safety Report 18886196 (Version 7)
Quarter: 2025Q3

REPORT INFORMATION
  Report Type: Report from Study
  Country: US (occurrence: US)
  Receive Date: 20210212
  Receipt Date: 20250806
  Transmission Date: 20251021
  Serious: Yes (Hospitalization, Other)
  Sender: TAKEDA
  Company Number: US-TAKEDA-2021TUS008338

PATIENT
  Sex: Male
  Weight: 58 kg

DRUGS (13)
  1. IDURSULFASE [Suspect]
     Active Substance: IDURSULFASE
     Indication: Mucopolysaccharidosis
     Dosage: 30 MILLIGRAM, 1/WEEK
     Dates: start: 20061016
  2. DIPHENHYDRAMINE [Concomitant]
     Active Substance: DIPHENHYDRAMINE
  3. HEPARIN [Concomitant]
     Active Substance: HEPARIN SODIUM
  4. HYDROCORTISONE [Concomitant]
     Active Substance: HYDROCORTISONE
  5. LIDOCAINE\PRILOCAINE [Concomitant]
     Active Substance: LIDOCAINE\PRILOCAINE
  6. SODIUM CHLORIDE [Concomitant]
     Active Substance: SODIUM CHLORIDE
  7. EPINEPHRINE [Concomitant]
     Active Substance: EPINEPHRINE
  8. VITAMIN D3 [Concomitant]
     Active Substance: CHOLECALCIFEROL
  9. LISINOPRIL [Concomitant]
     Active Substance: LISINOPRIL
  10. SODIUM CHLORIDE [Concomitant]
     Active Substance: SODIUM CHLORIDE
  11. DIPHENHYDRAMINE HYDROCHLORIDE [Concomitant]
     Active Substance: DIPHENHYDRAMINE HYDROCHLORIDE
  12. ELIQUIS [Concomitant]
     Active Substance: APIXABAN
  13. VITAMIN D [Concomitant]
     Active Substance: VITAMIN D NOS

REACTIONS (8)
  - Thrombosis [Unknown]
  - Nasopharyngitis [Unknown]
  - Malaise [Unknown]
  - Arthropathy [Unknown]
  - Product dose omission issue [Unknown]
  - Circumstance or information capable of leading to medication error [Unknown]
  - Urinary tract infection [Unknown]
  - Ear infection [Recovered/Resolved]
